FAERS Safety Report 7700628-7 (Version None)
Quarter: 2011Q3

REPORT INFORMATION
  Report Type: 
  Country: None (occurrence: None)
  Receive Date: 20110822
  Receipt Date: 20110822
  Transmission Date: 20111222
  Serious: Yes (Hospitalization)
  Sender: FDA-Public Use
  Company Number: None

PATIENT
  Age: 41 Year
  Sex: Female
  Weight: 68 kg

DRUGS (1)
  1. VENOFER [Suspect]
     Indication: NEPHROGENIC ANAEMIA
     Dosage: 300 MG IN 250 ML NS
     Route: 041
     Dates: start: 20110728, end: 20110728

REACTIONS (12)
  - LETHARGY [None]
  - ORTHOSTATIC HYPOTENSION [None]
  - PERIORBITAL OEDEMA [None]
  - OEDEMA PERIPHERAL [None]
  - DIZZINESS POSTURAL [None]
  - CHILLS [None]
  - ARTHROPATHY [None]
  - DEPRESSED LEVEL OF CONSCIOUSNESS [None]
  - NAUSEA [None]
  - MALAISE [None]
  - EXTRASYSTOLES [None]
  - OEDEMA [None]
